FAERS Safety Report 9298432 (Version 1)
Quarter: 2013Q1

REPORT INFORMATION
  Report Type: Spontaneous
  Country: US (occurrence: None)
  Receive Date: 20121227
  Receipt Date: 20121227
  Transmission Date: 20140127
  Serious: No
  Sender: FDA-Public Use
  Company Number: PHEH2012US019466

PATIENT
  Age: 60 Year
  Sex: Male

DRUGS (1)
  1. AFINITOR [Suspect]
     Indication: NEOPLASM MALIGNANT
     Route: 048
     Dates: start: 20120605, end: 20120928

REACTIONS (5)
  - Pulmonary congestion [None]
  - Neoplasm [None]
  - Oedema peripheral [None]
  - Rash [None]
  - Malignant neoplasm progression [None]
